FAERS Safety Report 10358824 (Version 1)
Quarter: 2014Q3

REPORT INFORMATION
  Report Type: Spontaneous
  Country: US (occurrence: US)
  Receive Date: 20140804
  Receipt Date: 20140804
  Transmission Date: 20150326
  Serious: Yes (Other)
  Sender: FDA-Public Use
  Company Number: US-AMGEN-USASP2014057243

PATIENT
  Sex: Female
  Weight: 66.21 kg

DRUGS (1)
  1. PROLIA [Suspect]
     Active Substance: DENOSUMAB
     Indication: OSTEOPOROSIS POSTMENOPAUSAL
     Dosage: UNK
     Route: 065

REACTIONS (9)
  - Oophorectomy [Unknown]
  - Menopausal symptoms [Unknown]
  - Oestrogen deficiency [Unknown]
  - Hysterectomy [Unknown]
  - Depression [Unknown]
  - Osteoarthritis [Unknown]
  - Diabetes mellitus [Unknown]
  - Surgery [Unknown]
  - Vitamin D deficiency [Unknown]
